FAERS Safety Report 7249292-4 (Version None)
Quarter: 2011Q1

REPORT INFORMATION
  Report Type: 
  Country: None (occurrence: None)
  Receive Date: 20110128
  Receipt Date: 20101124
  Transmission Date: 20110831
  Serious: Yes (Hospitalization, Other)
  Sender: FDA-Public Use
  Company Number: JP-BAYER-201012239BYL

PATIENT
  Sex: Male
  Weight: 52 kg

DRUGS (13)
  1. FAMOSTAGINE [Concomitant]
     Dosage: 20 MG (DAILY DOSE), , ORAL
     Route: 048
     Dates: end: 20100127
  2. LIVACT [Concomitant]
     Indication: HYPOALBUMINAEMIA
     Dosage: 12.45 G (DAILY DOSE), , ORAL
     Route: 048
     Dates: start: 20100413, end: 20100422
  3. URSO 250 [Concomitant]
     Indication: CHRONIC HEPATITIS
     Dosage: 600 MG (DAILY DOSE), , ORAL
     Route: 048
     Dates: start: 20100413, end: 20100422
  4. NEXAVAR [Suspect]
     Dosage: 400 MG (DAILY DOSE), , ORAL
     Route: 048
     Dates: start: 20100419, end: 20100419
  5. PANCREAZE [Concomitant]
     Route: 048
     Dates: end: 20100127
  6. NEXAVAR [Suspect]
     Indication: HEPATIC NEOPLASM MALIGNANT
     Route: 048
     Dates: start: 20100413, end: 20100415
  7. BARACLUDE [Concomitant]
     Indication: HEPATITIS B
     Dosage: 0.5 MG (DAILY DOSE), , ORAL
     Route: 048
     Dates: start: 20100128
  8. OXYCONTIN [Concomitant]
     Indication: CANCER PAIN
     Dosage: 20 MG (DAILY DOSE), , ORAL
     Route: 048
     Dates: start: 20100110, end: 20100419
  9. NEXAVAR [Suspect]
     Route: 048
     Dates: start: 20100416, end: 20100418
  10. LOXONIN [Concomitant]
     Indication: CANCER PAIN
     Dosage: 180 MG (DAILY DOSE), , ORAL
     Route: 048
     Dates: start: 20100128, end: 20100419
  11. OMEPRAL [Concomitant]
     Indication: GASTRITIS
     Dosage: 10 MG (DAILY DOSE), , ORAL
     Route: 048
     Dates: start: 20100128, end: 20100428
  12. MAGMITT [Concomitant]
     Indication: CONSTIPATION
     Dosage: 990 MG (DAILY DOSE), , ORAL
     Route: 048
     Dates: start: 20100207, end: 20100420
  13. MUCOSTA [Concomitant]
     Route: 048
     Dates: end: 20100127

REACTIONS (5)
  - BLOOD PRESSURE SYSTOLIC INCREASED [None]
  - BACK PAIN [None]
  - HEPATIC FUNCTION ABNORMAL [None]
  - TUMOUR NECROSIS [None]
  - PYREXIA [None]
